FAERS Safety Report 9575730 (Version 1)
Quarter: 2013Q4

REPORT INFORMATION
  Report Type: Spontaneous
  Country: US (occurrence: US)
  Receive Date: 20131001
  Receipt Date: 20131001
  Transmission Date: 20140711
  Serious: No
  Sender: FDA-Public Use
  Company Number: US-AMGEN-USASP2012049104

PATIENT
  Age: 71 Year
  Sex: Male
  Weight: 77.1 kg

DRUGS (2)
  1. PROCRIT [Suspect]
     Indication: DIALYSIS
     Dosage: UNK
     Route: 058
  2. PROCRIT [Suspect]
     Dosage: 10000 IU, QWK
     Route: 058

REACTIONS (1)
  - Expired drug administered [Not Recovered/Not Resolved]
